FAERS Safety Report 16545802 (Version 1)
Quarter: 2019Q3

REPORT INFORMATION
  Report Type: Report from Study
  Country: DE (occurrence: DE)
  Receive Date: 20190709
  Receipt Date: 20190709
  Transmission Date: 20191004
  Serious: Yes (Other)
  Sender: FDA-Public Use
  Company Number: DE-ELI_LILLY_AND_COMPANY-DE201907000470

PATIENT
  Age: 64 Year
  Sex: Female

DRUGS (2)
  1. L-THYROXINE LEVOTHYROXINE [Concomitant]
     Indication: THYROID DISORDER
     Dosage: 50 UG, UNKNOWN
     Route: 065
  2. TERIPARATIDE [Suspect]
     Active Substance: TERIPARATIDE
     Indication: OSTEOPOROSIS
     Dosage: UNK UNK, DAILY
     Route: 058
     Dates: start: 20180101, end: 201901

REACTIONS (3)
  - Abdominal discomfort [Not Recovered/Not Resolved]
  - Diaphragmatic hernia [Not Recovered/Not Resolved]
  - Dyspepsia [Not Recovered/Not Resolved]
